FAERS Safety Report 21963509 (Version 1)
Quarter: 2023Q1

REPORT INFORMATION
  Report Type: Report from Study
  Country: CA (occurrence: CA)
  Receive Date: 20230207
  Receipt Date: 20230207
  Transmission Date: 20230417
  Serious: Yes (Other)
  Sender: FDA-Public Use
  Company Number: CA-002147023-NVSC2023CA027182

PATIENT
  Sex: Female
  Weight: 65 kg

DRUGS (1)
  1. PIRFENIDONE [Suspect]
     Active Substance: PIRFENIDONE
     Indication: Interstitial lung disease
     Dosage: UNK
     Route: 065

REACTIONS (5)
  - Forced expiratory volume decreased [Unknown]
  - Total lung capacity decreased [Unknown]
  - Cough [Unknown]
  - Dyspnoea [Unknown]
  - COVID-19 [Unknown]
